FAERS Safety Report 10009369 (Version 1)
Quarter: 2014Q1

REPORT INFORMATION
  Report Type: Report from Study
  Country: US (occurrence: US)
  Receive Date: 20140313
  Receipt Date: 20140313
  Transmission Date: 20141002
  Serious: Yes (Death, Hospitalization, Other)
  Sender: FDA-Public Use
  Company Number: US-009507513-1403USA002692

PATIENT
  Age: 65 Year
  Sex: Male
  Weight: 55.28 kg

DRUGS (8)
  1. DEXAMETHASONE [Suspect]
     Indication: METASTASES TO CENTRAL NERVOUS SYSTEM
     Dosage: MG, BID
     Route: 048
     Dates: start: 201210, end: 20121129
  2. CRIZOTINIB [Suspect]
     Indication: NON-SMALL CELL LUNG CANCER
     Dosage: 200 MG, BID
     Route: 048
     Dates: start: 20090812, end: 20121204
  3. LEVETIRACETAM [Concomitant]
  4. LEVOTHYROXINE SODIUM [Concomitant]
     Route: 048
  5. LORAZEPAM [Concomitant]
  6. PAXIL [Concomitant]
  7. PHOSPHA 250 NEUTRAL [Concomitant]
  8. VITAMINS (UNSPECIFIED) [Concomitant]

REACTIONS (7)
  - Bronchopulmonary aspergillosis [Fatal]
  - Hypoxia [Not Recovered/Not Resolved]
  - Renal failure acute [Unknown]
  - Endotracheal intubation [Unknown]
  - Disseminated intravascular coagulation [Unknown]
  - Platelet transfusion [Unknown]
  - Platelet count decreased [Unknown]
